FAERS Safety Report 15704119 (Version 3)
Quarter: 2019Q2

REPORT INFORMATION
  Report Type: Spontaneous
  Country: CN (occurrence: CN)
  Receive Date: 20181210
  Receipt Date: 20190623
  Transmission Date: 20190711
  Serious: Yes (Other)
  Sender: FDA-Public Use
  Company Number: PHHY2018CN173201

PATIENT
  Age: 40 Year
  Sex: Female

DRUGS (5)
  1. PREDNISOLONE. [Suspect]
     Active Substance: PREDNISOLONE
     Indication: DERMATOMYOSITIS
     Dosage: WITH TAPERING DOSE
     Route: 048
  2. PREDNISOLONE. [Suspect]
     Active Substance: PREDNISOLONE
     Indication: IDIOPATHIC ORBITAL INFLAMMATION
     Dosage: 1 MG/KG, WITH WEEKLY TAPER
     Route: 048
  3. CICLOSPORIN [Suspect]
     Active Substance: CYCLOSPORINE
     Indication: DERMATOMYOSITIS
     Dosage: 25 MG, UNK
     Route: 065
  4. TACROLIMUS. [Suspect]
     Active Substance: TACROLIMUS
     Indication: DERMATOMYOSITIS
     Dosage: 2.5 MG, QD
     Route: 065
  5. RITUXIMAB. [Suspect]
     Active Substance: RITUXIMAB
     Indication: DERMATOMYOSITIS
     Dosage: 700 MG, QW (375 MG/M2) WEEKLY FOR 4 WEEKS
     Route: 048

REACTIONS (8)
  - Pancytopenia [Unknown]
  - Periorbital swelling [Recovered/Resolved]
  - Skin ulcer [Recovered/Resolved]
  - Product use in unapproved indication [Unknown]
  - Muscular weakness [Recovered/Resolved]
  - Rash [Recovered/Resolved]
  - Dermatomyositis [Recovered/Resolved]
  - Mouth ulceration [Recovered/Resolved]
